FAERS Safety Report 7546827-9 (Version None)
Quarter: 2011Q2

REPORT INFORMATION
  Report Type: 
  Country: None (occurrence: None)
  Receive Date: 20110614
  Receipt Date: 20110606
  Transmission Date: 20111010
  Serious: Yes (Hospitalization, Other)
  Sender: FDA-Public Use
  Company Number: GB-ROCHE-780793

PATIENT
  Age: 80 Year
  Sex: Male

DRUGS (1)
  1. CAPECITABINE [Suspect]
     Route: 048

REACTIONS (13)
  - FATIGUE [None]
  - KERATOPATHY [None]
  - POLYURIA [None]
  - NEUTROPENIA [None]
  - DIZZINESS [None]
  - DIARRHOEA [None]
  - CONJUNCTIVITIS [None]
  - DIHYDROPYRIMIDINE DEHYDROGENASE DEFICIENCY [None]
  - MUCOSAL INFLAMMATION [None]
  - RASH [None]
  - THROMBOCYTOPENIA [None]
  - ECTROPION [None]
  - EYELID DISORDER [None]
